FAERS Safety Report 5595453-X (Version None)
Quarter: 2008Q1

REPORT INFORMATION
  Report Type: 
  Country: None (occurrence: None)
  Receive Date: 20080118
  Receipt Date: 20080114
  Transmission Date: 20080703
  Serious: Yes (Other)
  Sender: FDA-Public Use
  Company Number: US-JNJFOC-20080102438

PATIENT
  Sex: Female
  Weight: 72.58 kg

DRUGS (7)
  1. INVEGA [Suspect]
     Indication: ANXIETY
     Route: 048
  2. INVEGA [Suspect]
     Indication: EMOTIONAL DISORDER
     Route: 048
  3. INVEGA [Suspect]
     Indication: MENTAL DISORDER
     Route: 048
  4. SYNTHROID [Concomitant]
     Indication: HYPOTHYROIDISM
     Route: 048
  5. INDERAL [Concomitant]
     Indication: HYPERTENSION
     Route: 065
  6. LASIX [Concomitant]
     Indication: HYPERTENSION
     Route: 048
  7. HUMALOG [Concomitant]
     Indication: DIABETES MELLITUS
     Route: 065

REACTIONS (15)
  - ABDOMINAL PAIN LOWER [None]
  - ABDOMINAL PAIN UPPER [None]
  - ANXIETY [None]
  - ARTHRALGIA [None]
  - CHEST DISCOMFORT [None]
  - DYSPNOEA [None]
  - EYE HAEMORRHAGE [None]
  - FEELING ABNORMAL [None]
  - INSOMNIA [None]
  - JOINT SWELLING [None]
  - MOOD ALTERED [None]
  - MUSCULOSKELETAL PAIN [None]
  - OEDEMA PERIPHERAL [None]
  - PAIN IN EXTREMITY [None]
  - SUICIDAL IDEATION [None]
